FAERS Safety Report 7082245-8 (Version None)
Quarter: 2010Q4

REPORT INFORMATION
  Report Type: 
  Country: None (occurrence: None)
  Receive Date: 20101104
  Receipt Date: 20101021
  Transmission Date: 20110411
  Serious: Yes (Hospitalization)
  Sender: FDA-Public Use
  Company Number: GB-RANBAXY-2010R1-38836

PATIENT

DRUGS (3)
  1. RISPERIDONE [Suspect]
     Indication: PSYCHOTIC DISORDER
     Dosage: 4 MG, QD
     Route: 065
  2. RISPERIDONE [Suspect]
     Dosage: 6 MG AT NIGHT.
  3. LORAZEPAM [Concomitant]
     Indication: PSYCHOTIC DISORDER
     Dosage: 1 MG, AS NECESSARY
     Route: 065

REACTIONS (2)
  - DYSPHEMIA [None]
  - EXTRAPYRAMIDAL DISORDER [None]
